FAERS Safety Report 18405944 (Version 1)
Quarter: 2020Q4

REPORT INFORMATION
  Report Type: Spontaneous
  Country: FR (occurrence: FR)
  Receive Date: 20201020
  Receipt Date: 20201020
  Transmission Date: 20210114
  Serious: Yes (Hospitalization)
  Sender: FDA-Public Use
  Company Number: FR-BAUSCH-BL-2020-029519

PATIENT
  Age: 57 Year
  Sex: Female
  Weight: 71 kg

DRUGS (1)
  1. ACICLOVIR [Suspect]
     Active Substance: ACYCLOVIR
     Indication: HERPES ZOSTER
     Route: 042
     Dates: start: 20200914, end: 20200920

REACTIONS (2)
  - Acute kidney injury [Recovering/Resolving]
  - Crystalluria [Recovering/Resolving]

NARRATIVE: CASE EVENT DATE: 20200922
